FAERS Safety Report 17257574 (Version 2)
Quarter: 2020Q2

REPORT INFORMATION
  Report Type: Spontaneous
  Country: US (occurrence: US)
  Receive Date: 20200110
  Receipt Date: 20200507
  Transmission Date: 20200713
  Serious: No
  Sender: FDA-Public Use
  Company Number: US-PFIZER INC-2020011398

PATIENT
  Age: 56 Year
  Sex: Female

DRUGS (1)
  1. XELJANZ XR [Suspect]
     Active Substance: TOFACITINIB CITRATE
     Dosage: 11 MG, DAILY [TAKE 1 TABLET BY MOUTH DAILY]
     Route: 048
     Dates: start: 20191220

REACTIONS (4)
  - Fatigue [Unknown]
  - Headache [Unknown]
  - Migraine [Unknown]
  - Abdominal discomfort [Unknown]
